FAERS Safety Report 14228785 (Version 1)
Quarter: 2017Q4

REPORT INFORMATION
  Report Type: Report from Study
  Country: CN (occurrence: CN)
  Receive Date: 20171128
  Receipt Date: 20171128
  Transmission Date: 20180321
  Serious: Yes (Other)
  Sender: FDA-Public Use
  Company Number: CN-ROCHE-1687078

PATIENT
  Age: 76 Year
  Sex: Male
  Weight: 93 kg

DRUGS (1)
  1. AVASTIN [Suspect]
     Active Substance: BEVACIZUMAB
     Indication: NON-SMALL CELL LUNG CANCER
     Route: 041
     Dates: start: 20150702

REACTIONS (7)
  - Fatigue [Unknown]
  - Pain [Recovering/Resolving]
  - Ligament sprain [Unknown]
  - Renal impairment [Unknown]
  - General physical health deterioration [Unknown]
  - Proteinuria [Unknown]
  - Proteinuria [Recovering/Resolving]

NARRATIVE: CASE EVENT DATE: 201602
